FAERS Safety Report 25713036 (Version 3)
Quarter: 2025Q4

REPORT INFORMATION
  Report Type: Spontaneous
  Country: JP (occurrence: JP)
  Receive Date: 20250821
  Receipt Date: 20251007
  Transmission Date: 20260117
  Serious: Yes (Other)
  Sender: SANOFI AVENTIS
  Company Number: JP-SA-2025SA240811

PATIENT
  Age: 33 Year
  Sex: Female

DRUGS (5)
  1. LANTUS SOLOSTAR [Suspect]
     Active Substance: INSULIN GLARGINE
     Indication: Type 1 diabetes mellitus
     Dosage: UNK UNK, QD
     Route: 058
  2. LANTUS SOLOSTAR [Suspect]
     Active Substance: INSULIN GLARGINE
     Dosage: (DOSE DECREASED), QD
     Route: 058
  3. INSULIN LISPRO [Suspect]
     Active Substance: INSULIN LISPRO
     Indication: Type 1 diabetes mellitus
     Dosage: ABOUT 100 UNITS/DAY
     Route: 065
  4. INSULIN LISPRO [Suspect]
     Active Substance: INSULIN LISPRO
     Dosage: UNK (4 TIMES A DAY)
     Route: 065
  5. APIDRA SOLOSTAR [Suspect]
     Active Substance: INSULIN GLULISINE
     Indication: Type 1 diabetes mellitus
     Dosage: UNK, TID (BEFORE EACH MEAL)
     Route: 058

REACTIONS (5)
  - Injection site necrosis [Unknown]
  - Cutaneous amyloidosis [Recovering/Resolving]
  - Skin discharge [Recovering/Resolving]
  - Injection site erythema [Recovering/Resolving]
  - Maternal exposure during pregnancy [Unknown]
